FAERS Safety Report 8601563 (Version 4)
Quarter: 2013Q1

REPORT INFORMATION
  Report Type: Spontaneous
  Country: SE (occurrence: SE)
  Receive Date: 20120606
  Receipt Date: 20130129
  Transmission Date: 20140127
  Serious: Yes (Other)
  Sender: FDA-Public Use
  Company Number: SE-PFIZER INC-2012129719

PATIENT
  Age: 25 Year
  Sex: Male

DRUGS (4)
  1. REFACTO AF [Suspect]
     Indication: FACTOR VIII DEFICIENCY
     Dosage: 3000 IU, ALTERNATE DAY
     Route: 042
     Dates: start: 200912, end: 20120530
  2. MORPHINE [Concomitant]
     Indication: PAIN
     Dosage: UNK
  3. NEXIUM [Concomitant]
     Dosage: 40 MG, UNK
  4. CITODON [Concomitant]
     Dosage: AS NEEDED

REACTIONS (11)
  - Colitis ulcerative [Recovered/Resolved]
  - Intestinal perforation [Recovered/Resolved]
  - Drug ineffective [Unknown]
  - Intestinal haemorrhage [Recovered/Resolved]
  - Large intestinal ulcer haemorrhage [Unknown]
  - Large intestine perforation [Unknown]
  - Abdominal pain upper [Recovered/Resolved]
  - Arthralgia [Recovered/Resolved]
  - Fatigue [Recovered/Resolved]
  - Somnolence [Recovered/Resolved]
  - Pain [Not Recovered/Not Resolved]
